FAERS Safety Report 10077033 (Version 2)
Quarter: 2014Q2

REPORT INFORMATION
  Report Type: Spontaneous
  Country: JP (occurrence: JP)
  Receive Date: 20140414
  Receipt Date: 20140603
  Transmission Date: 20141212
  Serious: Yes (Hospitalization)
  Sender: FDA-Public Use
  Company Number: JP-JNJFOC-20140404367

PATIENT
  Age: 48 Year
  Sex: Male

DRUGS (4)
  1. RISPERDAL [Suspect]
     Indication: SCHIZOPHRENIA
     Route: 048
  2. FLUNITRAZEPAM [Concomitant]
     Indication: SCHIZOPHRENIA
     Route: 065
  3. DEPAKENE-R [Concomitant]
     Indication: SCHIZOPHRENIA
     Route: 048
  4. YOKUKAN-SAN [Concomitant]
     Indication: SCHIZOPHRENIA
     Route: 048

REACTIONS (1)
  - Pneumonia aspiration [Unknown]
